FAERS Safety Report 12079834 (Version 3)
Quarter: 2017Q2

REPORT INFORMATION
  Report Type: Spontaneous
  Country: US (occurrence: US)
  Receive Date: 20160216
  Receipt Date: 20170427
  Transmission Date: 20170829
  Serious: No
  Sender: FDA-Public Use
  Company Number: US-AUROBINDO-AUR-APU-2016-01352

PATIENT
  Age: 82 Year
  Sex: Male

DRUGS (1)
  1. LEVOFLOXACIN TABLETS 750MG [Suspect]
     Active Substance: LEVOFLOXACIN
     Indication: INFECTION
     Dosage: 750 MG, UNK
     Route: 065
     Dates: start: 20150129, end: 20160130

REACTIONS (4)
  - Swelling face [Unknown]
  - Gait disturbance [Unknown]
  - Mouth swelling [Unknown]
  - Pain in extremity [Unknown]

NARRATIVE: CASE EVENT DATE: 20150130
